FAERS Safety Report 20261660 (Version 1)
Quarter: 2021Q4

REPORT INFORMATION
  Report Type: Other
  Country: US (occurrence: None)
  Receive Date: 20211231
  Receipt Date: 20211231
  Transmission Date: 20220303
  Serious: No
  Sender: FDA-Public Use
  Company Number: US-ROCHE-2988182

PATIENT
  Sex: Male

DRUGS (1)
  1. OCREVUS [Suspect]
     Active Substance: OCRELIZUMAB
     Indication: Relapsing multiple sclerosis
     Dosage: LAST DOSE NOTED TO BE 01/DEC/2021?600 MG ONCE IN SIX MONTHS
     Route: 042
     Dates: start: 20191022

REACTIONS (1)
  - COVID-19 [Unknown]
